FAERS Safety Report 23916084 (Version 2)
Quarter: 2024Q2

REPORT INFORMATION
  Report Type: Spontaneous
  Country: US (occurrence: US)
  Receive Date: 20240529
  Receipt Date: 20240611
  Transmission Date: 20240716
  Serious: No
  Sender: FDA-Public Use
  Company Number: US-GILEAD-2024-0674521

PATIENT

DRUGS (1)
  1. YESCARTA [Suspect]
     Active Substance: AXICABTAGENE CILOLEUCEL
     Indication: Product used for unknown indication
     Dosage: 2X10^6 CAR-POSITIVE VIABLE T CELLS/KG BODYWEIGHT IN 68 ML SUSPENSION; APPROX 1 ML LOST DUE TO LEAK
     Route: 065

REACTIONS (1)
  - No adverse event [Unknown]
